FAERS Safety Report 25899919 (Version 1)
Quarter: 2025Q4

REPORT INFORMATION
  Report Type: Spontaneous
  Country: US (occurrence: US)
  Receive Date: 20251009
  Receipt Date: 20251009
  Transmission Date: 20260117
  Serious: No
  Sender: MANKIND PHARMA
  Company Number: US-MankindUS-000436

PATIENT
  Age: 73 Year
  Sex: Male

DRUGS (9)
  1. LIDOCAINE HYDROCHLORIDE [Suspect]
     Active Substance: LIDOCAINE HYDROCHLORIDE
     Indication: Hiccups
     Dosage: 3 ML OF 1%
  2. ROPIVACAINE [Suspect]
     Active Substance: ROPIVACAINE
     Indication: Hiccups
     Dosage: 3 ML OF 0.5%
  3. METOCLOPRAMIDE [Concomitant]
     Active Substance: METOCLOPRAMIDE
     Indication: Hiccups
  4. CLONAZEPAM [Concomitant]
     Active Substance: CLONAZEPAM
     Indication: Hiccups
  5. PROMETHAZINE [Concomitant]
     Active Substance: PROMETHAZINE HYDROCHLORIDE
     Indication: Hiccups
  6. BACLOFEN [Concomitant]
     Active Substance: BACLOFEN
     Indication: Hiccups
  7. CLONAZEPAM [Concomitant]
     Active Substance: CLONAZEPAM
     Indication: Hiccups
  8. CHLORPROMAZINE [Concomitant]
     Active Substance: CHLORPROMAZINE
     Indication: Hiccups
  9. OLANZAPINE [Concomitant]
     Active Substance: OLANZAPINE
     Indication: Hiccups

REACTIONS (1)
  - Therapeutic response decreased [Unknown]
